FAERS Safety Report 17932851 (Version 1)
Quarter: 2020Q2

REPORT INFORMATION
  Report Type: Spontaneous
  Country: CN (occurrence: CN)
  Receive Date: 20200623
  Receipt Date: 20200623
  Transmission Date: 20200714
  Serious: Yes (Hospitalization)
  Sender: FDA-Public Use
  Company Number: CN-PFIZER INC-2020239912

PATIENT
  Age: 60 Year
  Sex: Female
  Weight: 65 kg

DRUGS (2)
  1. METHYLPREDNISOLONE. [Suspect]
     Active Substance: METHYLPREDNISOLONE
     Indication: THERAPEUTIC PROCEDURE
     Dosage: 13 DF, 1X/DAY
     Route: 048
     Dates: start: 20200522, end: 20200527
  2. HUMAN IMMUNOGLOBULIN (PH4) [Concomitant]
     Active Substance: HUMAN IMMUNOGLOBULIN G
     Dosage: 22.5 G, 1X/DAY
     Route: 041
     Dates: start: 20200529, end: 20200602

REACTIONS (5)
  - Cyanosis [Recovered/Resolved]
  - Oedema peripheral [Recovered/Resolved]
  - Muscular weakness [Recovered/Resolved]
  - Haemorrhage [Recovered/Resolved]
  - Blood glucose increased [Recovered/Resolved]

NARRATIVE: CASE EVENT DATE: 20200608
